FAERS Safety Report 25483439 (Version 1)
Quarter: 2025Q2

REPORT INFORMATION
  Report Type: Spontaneous
  Country: CA (occurrence: None)
  Receive Date: 20250626
  Receipt Date: 20250626
  Transmission Date: 20250716
  Serious: Yes (Congenital Anomaly, Other)
  Sender: ELUSYS THERAPEUTICS
  Company Number: CA-Elusys Therapeutics Inc.-ELU202506-000001

PATIENT
  Age: 36 Year
  Sex: Female

DRUGS (1)
  1. ANTHIM [Suspect]
     Active Substance: OBILTOXAXIMAB
     Indication: Product used for unknown indication
     Route: 042

REACTIONS (3)
  - Congenital diaphragmatic hernia [Recovering/Resolving]
  - Maternal drugs affecting foetus [Unknown]
  - Maternal exposure during pregnancy [Unknown]
